FAERS Safety Report 22749856 (Version 4)
Quarter: 2024Q2

REPORT INFORMATION
  Report Type: Spontaneous
  Country: US (occurrence: US)
  Receive Date: 20230726
  Receipt Date: 20240508
  Transmission Date: 20240715
  Serious: Yes (Other)
  Sender: FDA-Public Use
  Company Number: US-GSK-US2023AMR100567

PATIENT

DRUGS (3)
  1. BENLYSTA [Suspect]
     Active Substance: BELIMUMAB
     Indication: Systemic lupus erythematosus
     Dosage: UNK, Q4W (INFUSE BENLYSTA 950MG IN NS(250ML DOSE VOLUME) VIA PORT AND GRAVIT)
     Route: 042
  2. BENLYSTA [Suspect]
     Active Substance: BELIMUMAB
     Dosage: 400 MG, Q4W
     Route: 042
  3. BENLYSTA [Suspect]
     Active Substance: BELIMUMAB
     Indication: Systemic lupus erythematosus
     Dosage: UNK, Q4W, ONE HOUR EVERY 28DAYS VIAP PORT AND GRAVITY
     Route: 042

REACTIONS (6)
  - Thrombosis [Unknown]
  - Spinal operation [Unknown]
  - Asthma [Unknown]
  - Back pain [Unknown]
  - Balance disorder [Unknown]
  - Product dose omission issue [Unknown]
